FAERS Safety Report 4382752-2 (Version None)
Quarter: 2004Q2

REPORT INFORMATION
  Report Type: 
  Country: None (occurrence: None)
  Receive Date: 20040617
  Receipt Date: 20040607
  Transmission Date: 20050107
  Serious: Yes (Other)
  Sender: FDA-Public Use
  Company Number: 2004037988

PATIENT
  Age: 40 Year
  Sex: Female

DRUGS (1)
  1. NEURONTIN [Suspect]
     Indication: GRAND MAL CONVULSION
     Dates: start: 19980101, end: 19990101

REACTIONS (3)
  - AMNESIA [None]
  - CONVULSION [None]
  - ISCHAEMIA [None]
